FAERS Safety Report 11679080 (Version 1)
Quarter: 2015Q4

REPORT INFORMATION
  Report Type: Spontaneous
  Country: US (occurrence: US)
  Receive Date: 20151027
  Receipt Date: 20151027
  Transmission Date: 20160304
  Serious: Yes (Hospitalization)
  Sender: FDA-Public Use
  Company Number: US-ELI_LILLY_AND_COMPANY-US201011006107

PATIENT
  Sex: Female

DRUGS (9)
  1. LEVOTHYROXINE. [Concomitant]
     Active Substance: LEVOTHYROXINE
  2. VITAMIN D [Concomitant]
     Active Substance: CHOLECALCIFEROL
  3. ANTIEMETICS AND ANTINAUSEANTS [Concomitant]
     Active Substance: UNSPECIFIED INGREDIENT
  4. POTASSIUM [Concomitant]
     Active Substance: POTASSIUM
     Route: 042
  5. FORTEO [Suspect]
     Active Substance: TERIPARATIDE
     Dosage: 20 UG, 2/D
  6. PROTONIX [Concomitant]
     Active Substance: PANTOPRAZOLE SODIUM
  7. CALCITRIOL. [Concomitant]
     Active Substance: CALCITRIOL
  8. TOPAMAX [Concomitant]
     Active Substance: TOPIRAMATE
  9. CALCIUM [Concomitant]
     Active Substance: CALCIUM
     Route: 042

REACTIONS (3)
  - Vomiting [Unknown]
  - Overdose [Unknown]
  - Intentional product misuse [Unknown]
